FAERS Safety Report 20919708 (Version 2)
Quarter: 2022Q3

REPORT INFORMATION
  Report Type: Spontaneous
  Country: US (occurrence: US)
  Receive Date: 20220606
  Receipt Date: 20220706
  Transmission Date: 20221027
  Serious: No
  Sender: FDA-Public Use
  Company Number: US-PFIZER INC-202200788192

PATIENT
  Age: 66 Year
  Sex: Female
  Weight: 61.69 kg

DRUGS (1)
  1. PAXLOVID [Suspect]
     Active Substance: NIRMATRELVIR\RITONAVIR
     Indication: COVID-19 treatment
     Dosage: 3 DF, 2X/DAY (100MG RITONAVIR 1 TABLET; 150 NIRMATRELVIR 2 TABLETS)
     Route: 048
     Dates: start: 20220531

REACTIONS (6)
  - Herpes simplex [Not Recovered/Not Resolved]
  - Dysgeusia [Unknown]
  - Malaise [Unknown]
  - Immune system disorder [Unknown]
  - Nasal disorder [Unknown]
  - Nasal discomfort [Unknown]

NARRATIVE: CASE EVENT DATE: 20220601
